FAERS Safety Report 4270135-5 (Version None)
Quarter: 2004Q1

REPORT INFORMATION
  Report Type: 
  Country: None (occurrence: None)
  Receive Date: 20040112
  Receipt Date: 20040112
  Transmission Date: 20041129
  Serious: Yes (Hospitalization)
  Sender: FDA-Public Use
  Company Number: None

PATIENT
  Age: 47 Year
  Sex: Male

DRUGS (7)
  1. ATENOLOL [Suspect]
     Indication: HYPERTENSION
     Dosage: 100 MG QD
     Dates: start: 19980401
  2. FOLIC ACID [Concomitant]
  3. ISOSORBIDE [Concomitant]
  4. LORATADINE [Concomitant]
  5. RANITIDINE [Concomitant]
  6. TERAZOSIN HCL [Concomitant]
  7. SUMATRIPTAN SUCCINATE [Concomitant]

REACTIONS (1)
  - SYNCOPE [None]
